FAERS Safety Report 8560960-4 (Version None)
Quarter: 2012Q3

REPORT INFORMATION
  Report Type: 
  Country: None (occurrence: None)
  Receive Date: 20120802
  Receipt Date: 20120724
  Transmission Date: 20120928
  Serious: Yes (Other)
  Sender: FDA-Public Use
  Company Number: JP-ELI_LILLY_AND_COMPANY-JP201102002165

PATIENT
  Age: 75 Year
  Sex: Female

DRUGS (2)
  1. FORTEO [Suspect]
     Dosage: UNK
     Route: 058
     Dates: start: 20110225
  2. FORTEO [Suspect]
     Dosage: UNK, UNK
     Route: 058
     Dates: start: 20110101, end: 20110217

REACTIONS (7)
  - SPINAL COMPRESSION FRACTURE [None]
  - CATARACT OPERATION [None]
  - INJECTION SITE SWELLING [None]
  - WRIST FRACTURE [None]
  - PARKINSON'S DISEASE [None]
  - ECZEMA [None]
  - HERPES ZOSTER [None]
